FAERS Safety Report 6775364-4 (Version None)
Quarter: 2010Q2

REPORT INFORMATION
  Report Type: 
  Country: None (occurrence: None)
  Receive Date: 20100615
  Receipt Date: 20100615
  Transmission Date: 20101027
  Serious: No
  Sender: FDA-Public Use
  Company Number: None

PATIENT
  Age: 49 Year
  Sex: Male

DRUGS (1)
  1. CHLORPROMAZINE [Suspect]
     Indication: HICCUPS
     Dosage: 25MG IV  (ONLY 1 DOSE)
     Route: 042

REACTIONS (3)
  - INCORRECT DOSE ADMINISTERED [None]
  - ORTHOSTATIC HYPOTENSION [None]
  - TACHYCARDIA [None]
